FAERS Safety Report 6296697-4 (Version None)
Quarter: 2009Q3

REPORT INFORMATION
  Report Type: 
  Country: None (occurrence: None)
  Receive Date: 20090804
  Receipt Date: 20090728
  Transmission Date: 20100115
  Serious: Yes (Hospitalization, Other)
  Sender: FDA-Public Use
  Company Number: US-ELI_LILLY_AND_COMPANY-US200907006383

PATIENT
  Sex: Male

DRUGS (6)
  1. HUMALOG [Suspect]
     Indication: TYPE 2 DIABETES MELLITUS
     Dosage: 10 U, 3/D
     Dates: start: 20081101
  2. HUMALOG [Suspect]
     Dosage: 10 U, 3/D
     Dates: start: 20081101
  3. DIOVAN [Concomitant]
     Indication: HYPERTENSION
  4. AMBIEN [Concomitant]
  5. SEROQUEL [Concomitant]
  6. LANTUS [Concomitant]
     Dosage: 100 U, DAILY (1/D)

REACTIONS (6)
  - BLOOD GLUCOSE INCREASED [None]
  - HYPERTENSION [None]
  - INTENTIONAL DRUG MISUSE [None]
  - POOR QUALITY DRUG ADMINISTERED [None]
  - SEPSIS [None]
  - URINARY TRACT INFECTION [None]
